FAERS Safety Report 25818606 (Version 2)
Quarter: 2025Q4

REPORT INFORMATION
  Report Type: Spontaneous
  Country: US (occurrence: US)
  Receive Date: 20250918
  Receipt Date: 20251006
  Transmission Date: 20260117
  Serious: Yes (Life-Threatening, Hospitalization)
  Sender: TEVA
  Company Number: US-TEVA-VS-3370915

PATIENT
  Age: 72 Year
  Sex: Female

DRUGS (4)
  1. PREDNISONE [Suspect]
     Active Substance: PREDNISONE
     Indication: Anaphylaxis prophylaxis
     Dosage: ADMINISTERED AT 13 HOURS, 7 HOURS, AND 1 HOUR BEFORE HER INVASIVE CORONARY ANGIOGRAPHY
     Route: 048
  2. DIPHENHYDRAMINE HYDROCHLORIDE [Suspect]
     Active Substance: DIPHENHYDRAMINE HYDROCHLORIDE
     Indication: Anaphylaxis prophylaxis
     Dosage: 1 HOUR BEFORE INVASIVE CORONARY ANGIOGRAPHY
     Route: 048
  3. IODIXANOL [Suspect]
     Active Substance: IODIXANOL
     Indication: Scan with contrast
     Dosage: VISIPAQUE
     Route: 065
  4. IODIXANOL [Suspect]
     Active Substance: IODIXANOL
     Indication: Scan with contrast
     Route: 065

REACTIONS (11)
  - Anaphylactic reaction [Recovered/Resolved]
  - Drug ineffective [Unknown]
  - Dyspnoea [Recovered/Resolved]
  - Urticaria [Unknown]
  - Chest pain [Unknown]
  - Abdominal pain [Unknown]
  - Presyncope [Unknown]
  - Hypotension [Unknown]
  - Pruritus [Unknown]
  - Flushing [Unknown]
  - Angioedema [Unknown]
